FAERS Safety Report 6600800-3 (Version None)
Quarter: 2010Q1

REPORT INFORMATION
  Report Type: 
  Country: None (occurrence: None)
  Receive Date: 20100225
  Receipt Date: 20100211
  Transmission Date: 20100710
  Serious: Yes (Other)
  Sender: FDA-Public Use
  Company Number: IN-RANBAXY-2010RR-31298

PATIENT
  Age: 11 Year
  Sex: Female

DRUGS (1)
  1. PHENOBARBITAL TAB [Suspect]
     Dosage: UNK

REACTIONS (2)
  - ALOPECIA [None]
  - DRUG RASH WITH EOSINOPHILIA AND SYSTEMIC SYMPTOMS [None]
